FAERS Safety Report 6136290-7 (Version None)
Quarter: 2009Q1

REPORT INFORMATION
  Report Type: 
  Country: None (occurrence: None)
  Receive Date: 20090330
  Receipt Date: 20090316
  Transmission Date: 20090719
  Serious: Yes (Death)
  Sender: FDA-Public Use
  Company Number: US-BRISTOL-MYERS SQUIBB COMPANY-14554919

PATIENT
  Age: 69 Year
  Sex: Male

DRUGS (13)
  1. PRINIVIL [Suspect]
     Route: 048
  2. PHENYTOIN [Suspect]
     Route: 065
  3. METOPROLOL TARTRATE [Suspect]
     Route: 065
  4. CLOPIDOGREL BISULFATE [Suspect]
     Route: 065
  5. ZETIA [Suspect]
     Dosage: FORMULATION TABLET
     Route: 048
  6. RANITIDINE [Suspect]
     Route: 065
  7. AMLODIPINE [Suspect]
     Route: 048
  8. SALICYLIC ACID [Suspect]
     Route: 065
  9. ALBUTEROL [Suspect]
     Route: 065
  10. TIAGABINE HCL [Suspect]
     Dosage: HYDROCHLORIDE
     Route: 065
  11. LORAZEPAM [Suspect]
     Route: 065
  12. ATORVASTATIN CALCIUM [Suspect]
     Route: 065
  13. CLONIDINE [Suspect]
     Route: 065

REACTIONS (2)
  - COMPLETED SUICIDE [None]
  - DRUG ABUSE [None]
